FAERS Safety Report 10006869 (Version 1)
Quarter: 2014Q1

REPORT INFORMATION
  Report Type: Spontaneous
  Country: US (occurrence: None)
  Receive Date: 20140311
  Receipt Date: 20140311
  Transmission Date: 20141002
  Serious: Yes (Hospitalization)
  Sender: FDA-Public Use
  Company Number: 20140100

PATIENT
  Age: 17 Year
  Sex: Female
  Weight: 37.8 kg

DRUGS (4)
  1. FUROSEMIDE [Suspect]
     Indication: PRODUCT USED FOR UNKNOWN INDICATION
  2. TOBRAMYCIN [Suspect]
     Indication: PRODUCT USED FOR UNKNOWN INDICATION
  3. TACROLIMUS [Suspect]
     Indication: PRODUCT USED FOR UNKNOWN INDICATION
  4. HEPARIN [Concomitant]

REACTIONS (4)
  - Renal failure acute [None]
  - Continuous haemodiafiltration [None]
  - Renal tubular necrosis [None]
  - Drug interaction [None]
